FAERS Safety Report 13804643 (Version 1)
Quarter: 2017Q3

REPORT INFORMATION
  Report Type: Spontaneous
  Country: US (occurrence: US)
  Receive Date: 20170728
  Receipt Date: 20170728
  Transmission Date: 20171127
  Serious: No
  Sender: FDA-Public Use
  Company Number: US-ABBVIE-17P-163-2032284-00

PATIENT
  Sex: Female
  Weight: 53.57 kg

DRUGS (6)
  1. OMEPRAZOLE (NON-ABBVIE) [Concomitant]
     Indication: GASTROOESOPHAGEAL REFLUX DISEASE
  2. CALICUM (NON-ABBVIE) [Concomitant]
     Indication: MINERAL SUPPLEMENTATION
  3. SYNTHROID [Suspect]
     Active Substance: LEVOTHYROXINE SODIUM
     Indication: HYPOTHYROIDISM
     Route: 048
  4. SYNTHROID [Suspect]
     Active Substance: LEVOTHYROXINE SODIUM
     Route: 048
  5. MULTIVITAMIN (NON-ABBVIE) [Concomitant]
     Indication: VITAMIN SUPPLEMENTATION
  6. MAGNESIUM (NON-ABBVIE) [Concomitant]
     Indication: MINERAL SUPPLEMENTATION

REACTIONS (1)
  - Thyroid function test abnormal [Not Recovered/Not Resolved]

NARRATIVE: CASE EVENT DATE: 201704
